FAERS Safety Report 7619189-6 (Version None)
Quarter: 2011Q3

REPORT INFORMATION
  Report Type: 
  Country: None (occurrence: None)
  Receive Date: 20110718
  Receipt Date: 20110707
  Transmission Date: 20111222
  Serious: Yes (Hospitalization)
  Sender: FDA-Public Use
  Company Number: PHHY2010JP78038

PATIENT
  Sex: Male
  Weight: 64 kg

DRUGS (8)
  1. FLIVAS [Concomitant]
     Dosage: 25 MG, UNK
     Route: 048
     Dates: start: 20091224
  2. BROTIZOLAM [Concomitant]
     Indication: INSOMNIA
     Dosage: UNK
     Route: 048
     Dates: start: 20090703
  3. EXJADE [Suspect]
     Indication: MYELODYSPLASTIC SYNDROME
     Dosage: 1000 MG/DAY
     Route: 048
     Dates: start: 20100813, end: 20100828
  4. EVIPROSTAT [Concomitant]
     Dosage: 6 DF, UNK
     Route: 048
     Dates: start: 20100730
  5. DEPAS [Concomitant]
     Dosage: 0.5 MF, UNK
     Route: 048
     Dates: start: 20100721
  6. LANSOPRAZOLE [Concomitant]
     Dosage: 15 MG, UNK
     Route: 048
     Dates: start: 20081010
  7. URSO 250 [Concomitant]
     Dosage: 300 MG, UNK
     Route: 048
     Dates: start: 20100513
  8. AMOBAN [Concomitant]
     Indication: INSOMNIA
     Dosage: UNK
     Route: 048
     Dates: start: 20081103

REACTIONS (5)
  - INFECTION [None]
  - DIARRHOEA [None]
  - MALAISE [None]
  - CHOLECYSTITIS [None]
  - BODY TEMPERATURE INCREASED [None]
